FAERS Safety Report 9643292 (Version 1)
Quarter: 2013Q4

REPORT INFORMATION
  Report Type: Spontaneous
  Country: US (occurrence: US)
  Receive Date: 20131024
  Receipt Date: 20131024
  Transmission Date: 20140711
  Serious: Yes (Hospitalization, Disabling)
  Sender: FDA-Public Use
  Company Number: US-UCBSA-100988

PATIENT
  Age: 35 Year
  Sex: Female

DRUGS (9)
  1. ALPRAZOLAM [Suspect]
  2. CETIRIZINE [Suspect]
  3. LORTAB [Suspect]
  4. OMEPRAZOLE [Interacting]
     Dosage: DOSAGE FORM: UNSPECIFIED
     Route: 048
  5. ATENOLOL [Interacting]
     Indication: HYPERTENSION
     Route: 048
  6. CANDESARTAN CILEXETIL [Interacting]
     Route: 048
  7. ESOMEPRAZOLE [Interacting]
     Route: 048
  8. METOPROLOL [Interacting]
     Route: 048
  9. LISINOPRIL [Interacting]
     Route: 048

REACTIONS (24)
  - Deep vein thrombosis [Not Recovered/Not Resolved]
  - Blood chloride decreased [Not Recovered/Not Resolved]
  - Blood cholesterol increased [Not Recovered/Not Resolved]
  - Bronchitis [Not Recovered/Not Resolved]
  - Cholelithiasis [Not Recovered/Not Resolved]
  - Glaucoma [Not Recovered/Not Resolved]
  - Neuropathy peripheral [Not Recovered/Not Resolved]
  - Osteoarthritis [Not Recovered/Not Resolved]
  - Phlebitis [Not Recovered/Not Resolved]
  - Purpura senile [Not Recovered/Not Resolved]
  - Resorption bone increased [Not Recovered/Not Resolved]
  - Tarsal tunnel syndrome [Not Recovered/Not Resolved]
  - Thrombophlebitis superficial [Not Recovered/Not Resolved]
  - Vasculitis [Not Recovered/Not Resolved]
  - Vestibular disorder [Not Recovered/Not Resolved]
  - Blood alkaline phosphatase increased [Not Recovered/Not Resolved]
  - Renal failure [Not Recovered/Not Resolved]
  - Blood sodium decreased [Not Recovered/Not Resolved]
  - Drug interaction [Not Recovered/Not Resolved]
  - Vertigo positional [Not Recovered/Not Resolved]
  - Alanine aminotransferase increased [Not Recovered/Not Resolved]
  - Aspartate aminotransferase increased [Not Recovered/Not Resolved]
  - Dizziness [Not Recovered/Not Resolved]
  - Arthritis [Not Recovered/Not Resolved]
